FAERS Safety Report 25113776 (Version 1)
Quarter: 2025Q1

REPORT INFORMATION
  Report Type: Spontaneous
  Country: CN (occurrence: CN)
  Receive Date: 20250324
  Receipt Date: 20250324
  Transmission Date: 20250409
  Serious: Yes (Other)
  Sender: PFIZER
  Company Number: CN-PFIZER INC-202500063742

PATIENT
  Age: 36 Year
  Sex: Female

DRUGS (5)
  1. CYTARABINE [Suspect]
     Active Substance: CYTARABINE
     Indication: Lymphoma
     Route: 041
     Dates: start: 20250209
  2. CYTARABINE [Suspect]
     Active Substance: CYTARABINE
     Route: 041
     Dates: start: 20250211
  3. THIOTEPA [Suspect]
     Active Substance: THIOTEPA
     Indication: Lymphoma
     Dates: start: 20250213
  4. VENETOCLAX [Suspect]
     Active Substance: VENETOCLAX
     Indication: Lymphoma
  5. POLIVY [Suspect]
     Active Substance: POLATUZUMAB VEDOTIN-PIIQ
     Indication: Lymphoma
     Dates: start: 20250220

REACTIONS (4)
  - Lymphoma [Unknown]
  - Malignant neoplasm progression [Unknown]
  - Second primary malignancy [Unknown]
  - Leukaemia [Unknown]

NARRATIVE: CASE EVENT DATE: 20250201
